FAERS Safety Report 12238096 (Version 2)
Quarter: 2016Q2

REPORT INFORMATION
  Report Type: Spontaneous
  Country: US (occurrence: US)
  Receive Date: 20160405
  Receipt Date: 20160513
  Transmission Date: 20160815
  Serious: No
  Sender: FDA-Public Use
  Company Number: US-GLAXOSMITHKLINE-US2016GSK042241

PATIENT
  Sex: Female

DRUGS (2)
  1. ARNUITY ELLIPTA [Suspect]
     Active Substance: FLUTICASONE FUROATE
     Indication: ASTHMA
     Dosage: 1 PUFF(S), QD
     Route: 055
     Dates: start: 201508, end: 201601
  2. ARNUITY ELLIPTA [Suspect]
     Active Substance: FLUTICASONE FUROATE
     Indication: COUGH
     Dosage: UNK
     Dates: start: 20150810, end: 20160301

REACTIONS (6)
  - Dental caries [Not Recovered/Not Resolved]
  - Tooth repair [Not Recovered/Not Resolved]
  - Tooth injury [Not Recovered/Not Resolved]
  - Artificial crown procedure [Not Recovered/Not Resolved]
  - Tooth disorder [Not Recovered/Not Resolved]
  - Endodontic procedure [Not Recovered/Not Resolved]
